FAERS Safety Report 6265216-0 (Version None)
Quarter: 2009Q3

REPORT INFORMATION
  Report Type: 
  Country: None (occurrence: None)
  Receive Date: 20090713
  Receipt Date: 20090708
  Transmission Date: 20100115
  Serious: Yes (Death, Other)
  Sender: FDA-Public Use
  Company Number: DE-ROCHE-642905

PATIENT

DRUGS (1)
  1. CAPECITABINE [Suspect]
     Route: 065

REACTIONS (2)
  - ASCITES [None]
  - MALIGNANT NEOPLASM PROGRESSION [None]
